FAERS Safety Report 12932943 (Version 1)
Quarter: 2016Q4

REPORT INFORMATION
  Report Type: Spontaneous
  Country: PE (occurrence: PE)
  Receive Date: 20161111
  Receipt Date: 20161111
  Transmission Date: 20170207
  Serious: Yes (Other)
  Sender: FDA-Public Use
  Company Number: PE-AMGEN-PERSP2016157726

PATIENT
  Age: 66 Year
  Sex: Female

DRUGS (7)
  1. PROLIA [Suspect]
     Active Substance: DENOSUMAB
     Dosage: 60 MUG, CYCLICAL
     Route: 058
     Dates: start: 20160531
  2. PROLIA [Suspect]
     Active Substance: DENOSUMAB
     Indication: OSTEOPOROSIS
     Dosage: 60 MUG, CYCLICAL
     Route: 058
     Dates: start: 20111115
  3. PROLIA [Suspect]
     Active Substance: DENOSUMAB
     Dosage: 60 MUG, CYCLICAL
     Route: 058
     Dates: start: 20120607
  4. PROLIA [Suspect]
     Active Substance: DENOSUMAB
     Dosage: 60 MUG, CYCLICAL
     Route: 058
     Dates: start: 20141014
  5. PROLIA [Suspect]
     Active Substance: DENOSUMAB
     Dosage: 60 MUG, CYCLICAL
     Route: 058
     Dates: start: 20150415
  6. PROLIA [Suspect]
     Active Substance: DENOSUMAB
     Dosage: 60 MUG, CYCLICAL
     Route: 058
     Dates: start: 20151202
  7. PROLIA [Suspect]
     Active Substance: DENOSUMAB
     Dosage: 60 MUG, CYCLICAL
     Route: 058
     Dates: start: 20121227

REACTIONS (2)
  - Inappropriate schedule of drug administration [Unknown]
  - Breast cancer [Not Recovered/Not Resolved]

NARRATIVE: CASE EVENT DATE: 2012
